FAERS Safety Report 18585197 (Version 1)
Quarter: 2020Q4

REPORT INFORMATION
  Report Type: Spontaneous
  Country: US (occurrence: US)
  Receive Date: 20201207
  Receipt Date: 20201207
  Transmission Date: 20210114
  Serious: No
  Sender: FDA-Public Use
  Company Number: US-ANTARES PHARMA, INC.-2019-POS-OT-0079

PATIENT

DRUGS (1)
  1. OTREXUP [Suspect]
     Active Substance: METHOTREXATE
     Indication: OFF LABEL USE
     Dosage: 20 MG/0.4ML, QWK
     Route: 058
     Dates: start: 201911, end: 2019

REACTIONS (1)
  - Adverse drug reaction [Unknown]
